FAERS Safety Report 8062497-8 (Version None)
Quarter: 2012Q1

REPORT INFORMATION
  Report Type: 
  Country: None (occurrence: None)
  Receive Date: 20120123
  Receipt Date: 20120110
  Transmission Date: 20120608
  Serious: Yes (Hospitalization)
  Sender: FDA-Public Use
  Company Number: ES-JNJFOC-20120103196

PATIENT
  Age: 15 Year
  Sex: Female

DRUGS (2)
  1. REMICADE [Suspect]
     Indication: CROHN'S DISEASE
     Dosage: 14TH INFUSION
     Route: 042
     Dates: start: 20111103
  2. REMICADE [Suspect]
     Route: 042

REACTIONS (1)
  - PNEUMONIA PRIMARY ATYPICAL [None]
